FAERS Safety Report 17180846 (Version 1)
Quarter: 2019Q4

REPORT INFORMATION
  Report Type: Spontaneous
  Country: PL (occurrence: PL)
  Receive Date: 20191219
  Receipt Date: 20191219
  Transmission Date: 20200122
  Serious: Yes (Life-Threatening, Hospitalization, Other)
  Sender: FDA-Public Use
  Company Number: PL-MYLANLABS-2019M1076303

PATIENT
  Age: 31 Year
  Sex: Female

DRUGS (6)
  1. LITHIUM CARBONATE. [Suspect]
     Active Substance: LITHIUM CARBONATE
     Indication: BRIEF PSYCHOTIC DISORDER, WITH POSTPARTUM ONSET
     Dosage: UNK
     Dates: start: 201609, end: 201609
  2. LEVOTHYROXINE                      /00068002/ [Concomitant]
     Active Substance: LEVOTHYROXINE
     Dosage: 25 MICROGRAM, QD
  3. OLANZAPINE. [Suspect]
     Active Substance: OLANZAPINE
     Indication: BRIEF PSYCHOTIC DISORDER, WITH POSTPARTUM ONSET
     Dosage: 20 MILLIGRAM, QD
     Dates: start: 201609, end: 201609
  4. THIAMAZOLE [Concomitant]
     Active Substance: METHIMAZOLE
     Dosage: 20 MILLIGRAM, QD
  5. HALOPERIDOL. [Suspect]
     Active Substance: HALOPERIDOL
     Indication: BRIEF PSYCHOTIC DISORDER, WITH POSTPARTUM ONSET
     Dosage: 2 MILLIGRAM, QD
  6. THIAMAZOLE [Concomitant]
     Active Substance: METHIMAZOLE
     Dosage: 5 MICROGRAM, QD

REACTIONS (21)
  - Muscle tightness [Recovered/Resolved]
  - Psychomotor hyperactivity [Recovered/Resolved]
  - Behaviour disorder [Recovered/Resolved]
  - Hallucination, auditory [Recovered/Resolved]
  - Myoglobin blood increased [Recovered/Resolved]
  - Depression [Recovered/Resolved]
  - Pyrexia [Recovered/Resolved]
  - Delusion of reference [Recovered/Resolved]
  - Crying [Recovered/Resolved]
  - Feeling guilty [Recovered/Resolved]
  - Skin lesion [Recovered/Resolved]
  - Neuroleptic malignant syndrome [Recovered/Resolved]
  - Delusion [Recovered/Resolved]
  - Persecutory delusion [Recovered/Resolved]
  - Blood thyroid stimulating hormone decreased [Recovered/Resolved]
  - Distractibility [Recovered/Resolved]
  - Speech disorder [Recovered/Resolved]
  - Blood creatine phosphokinase increased [Recovered/Resolved]
  - Abnormal behaviour [Recovered/Resolved]
  - Stubbornness [Recovered/Resolved]
  - Anxiety [Recovered/Resolved]
